FAERS Safety Report 12431800 (Version 1)
Quarter: 2016Q2

REPORT INFORMATION
  Report Type: Spontaneous
  Country: US (occurrence: US)
  Receive Date: 20160603
  Receipt Date: 20160603
  Transmission Date: 20160815
  Serious: No
  Sender: FDA-Public Use
  Company Number: US-SUN PHARMACEUTICAL INDUSTRIES LTD-2015SUN02079

PATIENT
  Age: 70 Year
  Sex: Male

DRUGS (10)
  1. GABAPENTIN. [Concomitant]
     Active Substance: GABAPENTIN
     Dosage: UNK
  2. TECHNETIUM TC-99M SULFUR COLLOID KIT [Suspect]
     Active Substance: TECHNETIUM TC-99M SULFUR COLLOID
     Indication: MALIGNANT MELANOMA
     Dosage: 0.25 MCI, 4X, SUBCUT
     Route: 058
     Dates: start: 20150814, end: 20150814
  3. FISH OIL [Concomitant]
     Active Substance: FISH OIL
  4. METFORMIN [Concomitant]
     Active Substance: METFORMIN HYDROCHLORIDE
     Dosage: 500 MG, TWICE A DAY
  5. FLAXSEED/ OMEGA 3,6,9 [Concomitant]
  6. AMITIZA [Concomitant]
     Active Substance: LUBIPROSTONE
     Dosage: 24 MCG, BID
  7. GABAPENTIN. [Concomitant]
     Active Substance: GABAPENTIN
     Dosage: 300 MG, BID
  8. GLUCOSAMINE [Concomitant]
     Active Substance: GLUCOSAMINE
  9. VALSARTAN. [Concomitant]
     Active Substance: VALSARTAN
     Dosage: 160/25 UNK, ONE DAILY
  10. ALEVE [Concomitant]
     Active Substance: NAPROXEN SODIUM
     Indication: PAIN
     Dosage: UNK, ASNECESSARY 2

REACTIONS (6)
  - Swelling [Recovering/Resolving]
  - Scab [Recovering/Resolving]
  - Erythema [Recovering/Resolving]
  - Blister [Recovering/Resolving]
  - Burns second degree [None]
  - Pain [Recovering/Resolving]

NARRATIVE: CASE EVENT DATE: 20150814
